FAERS Safety Report 9039185 (Version 1)
Quarter: 2013Q1

REPORT INFORMATION
  Report Type: Report from Study
  Country: US (occurrence: US)
  Receive Date: 20130129
  Receipt Date: 20130129
  Transmission Date: 20140127
  Serious: Yes (Hospitalization)
  Sender: FDA-Public Use
  Company Number: US-ABBOTT-12P-163-0934359-00

PATIENT
  Sex: Female

DRUGS (4)
  1. HUMIRA 40 MG/0.8 ML PEN [Suspect]
     Indication: RHEUMATOID ARTHRITIS
     Dates: start: 2002, end: 2011
  2. HUMIRA 40 MG/0.8 ML PEN [Suspect]
     Dates: start: 20120504
  3. COUMADIN [Suspect]
     Indication: THROMBOSIS
  4. UNKNOWN WATER PILL [Concomitant]
     Indication: PRODUCT USED FOR UNKNOWN INDICATION

REACTIONS (8)
  - Lower limb fracture [Recovered/Resolved with Sequelae]
  - Lower limb fracture [Recovered/Resolved]
  - Weight increased [Recovering/Resolving]
  - Thrombosis [Unknown]
  - Ankle fracture [Recovered/Resolved]
  - Arthralgia [Recovering/Resolving]
  - Generalised oedema [Recovering/Resolving]
  - Hypersensitivity [Unknown]
